FAERS Safety Report 17528693 (Version 1)
Quarter: 2020Q1

REPORT INFORMATION
  Report Type: Spontaneous
  Country: US (occurrence: US)
  Receive Date: 20200311
  Receipt Date: 20200311
  Transmission Date: 20200409
  Serious: No
  Sender: FDA-Public Use
  Company Number: US-BAXTER-2020BAX005236

PATIENT
  Sex: Male

DRUGS (1)
  1. EXTRANEAL [Suspect]
     Active Substance: CALCIUM CHLORIDE\ICODEXTRIN\MAGNESIUM CHLORIDE\SODIUM CHLORIDE\SODIUM LACTATE
     Indication: PERITONEAL DIALYSIS
     Route: 033

REACTIONS (6)
  - Peritoneal dialysis complication [Unknown]
  - Hypotension [Recovering/Resolving]
  - Peritoneal dialysis complication [Recovering/Resolving]
  - Blood calcium abnormal [Unknown]
  - Overweight [Unknown]
  - Malaise [Recovering/Resolving]
